FAERS Safety Report 15470643 (Version 2)
Quarter: 2018Q4

REPORT INFORMATION
  Report Type: Spontaneous
  Country: US (occurrence: US)
  Receive Date: 20181005
  Receipt Date: 20181017
  Transmission Date: 20190205
  Serious: No
  Sender: FDA-Public Use
  Company Number: US-PFIZER INC-2018398788

PATIENT
  Age: 70 Year
  Sex: Female
  Weight: 62.6 kg

DRUGS (4)
  1. NEURONTIN [Suspect]
     Active Substance: GABAPENTIN
     Indication: SYSTEMIC LUPUS ERYTHEMATOSUS
  2. MELATONIN [Concomitant]
     Active Substance: MELATONIN
     Dosage: UNK
  3. NEURONTIN [Suspect]
     Active Substance: GABAPENTIN
     Indication: SEIZURE
     Dosage: 2700 IU, DAILY (4-5 TABLETS A DAY)
     Dates: start: 199604
  4. DILANTIN [PHENYTOIN] [Concomitant]
     Dosage: UNK

REACTIONS (15)
  - Panic disorder [Unknown]
  - Feeling jittery [Unknown]
  - Eating disorder [Unknown]
  - Speech disorder [Unknown]
  - Withdrawal syndrome [Unknown]
  - Intentional product misuse [Unknown]
  - Tremor [Unknown]
  - Product use in unapproved indication [Unknown]
  - Condition aggravated [Not Recovered/Not Resolved]
  - Nausea [Unknown]
  - Sleep disorder [Not Recovered/Not Resolved]
  - Dizziness [Unknown]
  - Disorientation [Unknown]
  - Headache [Unknown]
  - Malaise [Unknown]

NARRATIVE: CASE EVENT DATE: 201809
